FAERS Safety Report 16565944 (Version 1)
Quarter: 2019Q3

REPORT INFORMATION
  Report Type: Spontaneous
  Country: JP (occurrence: JP)
  Receive Date: 20190712
  Receipt Date: 20190712
  Transmission Date: 20191004
  Serious: Yes (Hospitalization, Other)
  Sender: FDA-Public Use
  Company Number: JP-ACTELION-A-CH2019-192808

PATIENT
  Age: 50 Year
  Sex: Male

DRUGS (6)
  1. EPOPROSTENOL SODIUM. [Suspect]
     Active Substance: EPOPROSTENOL SODIUM
     Indication: RIGHT VENTRICULAR FAILURE
     Dosage: 2 NG/KG, PER MIN
     Route: 042
  2. EPOPROSTENOL SODIUM. [Suspect]
     Active Substance: EPOPROSTENOL SODIUM
     Dosage: 10 NG/KG, PER MIN
     Route: 042
  3. OXYGEN. [Concomitant]
     Active Substance: OXYGEN
  4. EPOPROSTENOL SODIUM. [Suspect]
     Active Substance: EPOPROSTENOL SODIUM
     Dosage: 4 NG/KG, PER MIN
     Route: 042
  5. MILRINONE [Concomitant]
     Active Substance: MILRINONE
  6. PROSTAGLANDIN E1 [Concomitant]
     Active Substance: ALPROSTADIL

REACTIONS (5)
  - Pulmonary artery thrombosis [Unknown]
  - Condition aggravated [Recovering/Resolving]
  - Pulmonary endarterectomy [Unknown]
  - Pulmonary haemorrhage [Recovering/Resolving]
  - Pulmonary arterial pressure increased [Recovering/Resolving]
